FAERS Safety Report 20782704 (Version 1)
Quarter: 2022Q2

REPORT INFORMATION
  Report Type: Spontaneous
  Country: US (occurrence: US)
  Receive Date: 20220504
  Receipt Date: 20220504
  Transmission Date: 20220720
  Serious: No
  Sender: FDA-Public Use
  Company Number: US-TAKEDA-2022TUS029697

PATIENT
  Sex: Female
  Weight: 8.75 kg

DRUGS (5)
  1. GATTEX [Suspect]
     Active Substance: TEDUGLUTIDE\WATER
     Indication: Short-bowel syndrome
     Dosage: 0.4 MILLIGRAM, QD
     Route: 058
  2. GATTEX [Suspect]
     Active Substance: TEDUGLUTIDE\WATER
     Indication: Short-bowel syndrome
     Dosage: 0.4 MILLIGRAM, QD
     Route: 058
  3. GATTEX [Suspect]
     Active Substance: TEDUGLUTIDE\WATER
     Indication: Short-bowel syndrome
     Dosage: 0.4 MILLIGRAM, QD
     Route: 058
  4. GATTEX [Suspect]
     Active Substance: TEDUGLUTIDE\WATER
     Indication: Short-bowel syndrome
     Dosage: 0.4 MILLIGRAM, QD
     Route: 058
  5. OMEPRAZOLE [Concomitant]
     Active Substance: OMEPRAZOLE
     Dosage: UNK

REACTIONS (1)
  - Injection site haemorrhage [Unknown]
